FAERS Safety Report 9206666 (Version 2)
Quarter: 2013Q4

REPORT INFORMATION
  Report Type: Spontaneous
  Country: US (occurrence: US)
  Receive Date: 20130403
  Receipt Date: 20131230
  Transmission Date: 20140711
  Serious: Yes (Hospitalization, Other)
  Sender: FDA-Public Use
  Company Number: US-BAYER-2013-040529

PATIENT
  Age: 24 Year
  Sex: Female
  Weight: 99.77 kg

DRUGS (19)
  1. YAZ [Suspect]
     Dosage: UNK
     Dates: start: 2011
  2. OCELLA [Suspect]
     Dosage: UNK
     Dates: start: 2011
  3. OXAPROZIN [Concomitant]
     Dosage: 600 MG, UNK
     Route: 048
     Dates: start: 20110214
  4. CEPHALEXIN [Concomitant]
     Dosage: 500 MG, UNK
     Route: 048
     Dates: start: 20110405
  5. METHOTREXATE [Concomitant]
     Dosage: 2.5 MG, UNK
     Route: 048
     Dates: start: 20110429
  6. LANSOPRAZOLE [Concomitant]
     Dosage: 15 MG, UNK
     Route: 048
     Dates: start: 20110221, end: 20110502
  7. DIAZEPAM [Concomitant]
     Dosage: 5 MG, UNK
     Route: 048
     Dates: start: 20110314, end: 20110517
  8. LEXAPRO [Concomitant]
     Dosage: 20 MG, UNK
     Route: 048
     Dates: start: 20110314, end: 20110521
  9. LEXAPRO [Concomitant]
     Dosage: UNK
     Route: 048
     Dates: start: 20110529
  10. CYCLOBENZAPRINE [Concomitant]
     Dosage: 10 MG, UNK
     Route: 048
     Dates: start: 20110314, end: 20110512
  11. BUPROPION HYDROCHLORIDE [Concomitant]
     Dosage: 100 MG, UNK
     Route: 048
     Dates: start: 20110521
  12. ENBREL [Concomitant]
     Dosage: 50 MG, UNK
     Route: 058
     Dates: start: 20110524
  13. WELLBUTRIN [Concomitant]
     Dosage: UNK
     Route: 048
     Dates: start: 20110529
  14. VALIUM [Concomitant]
     Dosage: UNK
     Route: 048
     Dates: start: 20110529
  15. PREVACID [Concomitant]
     Dosage: UNK
     Route: 048
     Dates: start: 20110529
  16. ADVAIR [Concomitant]
     Dosage: UNK
     Route: 048
     Dates: start: 20110529
  17. ADVAIR [Concomitant]
     Dosage: 250-50MCG
     Dates: start: 20110502
  18. ZYRTEC [Concomitant]
     Dosage: UNK
     Route: 048
     Dates: start: 20110529
  19. FLEXERIL [Concomitant]
     Dosage: UNK
     Route: 048
     Dates: start: 20110529

REACTIONS (2)
  - Cholecystitis chronic [None]
  - Cholecystectomy [None]
